FAERS Safety Report 22265202 (Version 1)
Quarter: 2023Q2

REPORT INFORMATION
  Report Type: Spontaneous
  Country: IT (occurrence: IT)
  Receive Date: 20230428
  Receipt Date: 20230428
  Transmission Date: 20230721
  Serious: Yes (Other)
  Sender: FDA-Public Use
  Company Number: IT-009507513-2211ITA003728

PATIENT
  Age: 71 Year
  Sex: Male

DRUGS (3)
  1. PEMETREXED [Suspect]
     Active Substance: PEMETREXED
     Indication: Non-small cell lung cancer metastatic
     Dosage: 4 CYCLES FOR EVERY 3 WEEKS, FIRST LINE OF TREATE
     Route: 065
  2. PLATINUM [Suspect]
     Active Substance: PLATINUM
     Indication: Non-small cell lung cancer
     Dosage: 4 CYCLES, Q3W
     Route: 065
  3. PEMBROLIZUMAB [Suspect]
     Active Substance: PEMBROLIZUMAB
     Indication: Non-small cell lung cancer metastatic
     Dosage: 4 CYCLES FOR EVERY 3 WEEKS, FIRST LINE OF TREATME
     Route: 065

REACTIONS (2)
  - Acute kidney injury [Unknown]
  - Proteinuria [Unknown]
